FAERS Safety Report 6960713 (Version 2)
Quarter: 2013Q4

REPORT INFORMATION
  Report Type: Spontaneous
  Country: US (occurrence: None)
  Receive Date: 20090325
  Receipt Date: 20131024
  Transmission Date: 20140711
  Serious: Yes (Other)
  Sender: FDA-Public Use
  Company Number: 2009S1002461

PATIENT
  Age: 74 Year
  Sex: Female

DRUGS (1)
  1. SODIUM PHOSPHATE, DIBASIC, HEPTAHYDRATE\SODIUM PHOSPHATE, MONOBASIC, MONOHYDRATE [Suspect]
     Indication: COLONOSCOPY
     Dosage: PO
     Route: 048
     Dates: start: 20050720

REACTIONS (3)
  - Toxicity to various agents [None]
  - Renal failure [None]
  - Hyperphosphataemia [None]
